FAERS Safety Report 8901857 (Version 1)
Quarter: 2012Q4

REPORT INFORMATION
  Report Type: Spontaneous
  Country: US (occurrence: None)
  Receive Date: 20121109
  Receipt Date: 20121109
  Transmission Date: 20130627
  Serious: No
  Sender: FDA-Public Use
  Company Number: None

PATIENT

DRUGS (1)
  1. REVATIO [Suspect]
     Indication: PULMONARY ARTERY HYPERTENSION
     Route: 040
     Dates: start: 20121101, end: 20121101

REACTIONS (1)
  - Product packaging issue [None]
